FAERS Safety Report 9605567 (Version 2)
Quarter: 2013Q4

REPORT INFORMATION
  Report Type: Spontaneous
  Country: US (occurrence: US)
  Receive Date: 20131008
  Receipt Date: 20131018
  Transmission Date: 20140711
  Serious: No
  Sender: FDA-Public Use
  Company Number: US-PFIZER INC-2013286639

PATIENT
  Sex: Male

DRUGS (6)
  1. LYRICA [Suspect]
     Indication: MIGRAINE
     Dosage: 75 MG, 1X/DAY
     Route: 048
     Dates: start: 20130919, end: 201309
  2. LYRICA [Suspect]
     Dosage: 150 MG(BY TAKING 2 CAPSULES OF 75MG), 2X/DAY
     Route: 048
     Dates: start: 201309
  3. KLONOPIN [Concomitant]
     Dosage: UNK
  4. INDERAL [Concomitant]
     Dosage: UNK
  5. SEROQUEL [Concomitant]
     Dosage: UNK
  6. ELAVIL [Concomitant]
     Dosage: UNK

REACTIONS (2)
  - Off label use [Not Recovered/Not Resolved]
  - Somnolence [Unknown]
